FAERS Safety Report 4773132-6 (Version None)
Quarter: 2005Q3

REPORT INFORMATION
  Report Type: 
  Country: None (occurrence: None)
  Receive Date: 20050915
  Receipt Date: 20050915
  Transmission Date: 20060218
  Serious: Yes (Hospitalization)
  Sender: FDA-Public Use
  Company Number: None

PATIENT
  Age: 60 Year
  Sex: Female

DRUGS (3)
  1. LINEZOLID [Suspect]
     Dosage: 600MG  Q12H   IV BOLUS
     Route: 040
     Dates: start: 20050908, end: 20050909
  2. MIRTAZAPINE [Concomitant]
  3. FENTANYL [Concomitant]

REACTIONS (1)
  - SEROTONIN SYNDROME [None]
